FAERS Safety Report 5900008-0 (Version None)
Quarter: 2008Q3

REPORT INFORMATION
  Report Type: 
  Country: None (occurrence: None)
  Receive Date: 20080925
  Receipt Date: 20080925
  Transmission Date: 20090109
  Serious: Yes (Death, Hospitalization)
  Sender: FDA-Public Use
  Company Number: None

PATIENT
  Sex: Female
  Weight: 45 kg

DRUGS (6)
  1. FLOUROURACIL - SOLUTION - 425 MG [Suspect]
     Indication: PANCREATIC CARCINOMA METASTATIC
     Dosage: 425 MG Q4W - INTRAVENOUS NOS
     Route: 042
     Dates: start: 20080505, end: 20080509
  2. LOPERAMIDE HYDROCHLORIDE [Concomitant]
  3. FUROSEMIDE [Concomitant]
  4. SPIRONOLACTONE [Concomitant]
  5. KALIUMKLORID [Concomitant]
  6. ACETAMINOPHEN [Concomitant]

REACTIONS (4)
  - DEHYDRATION [None]
  - MULTI-ORGAN FAILURE [None]
  - PEPTIC ULCER PERFORATION [None]
  - PERITONITIS [None]
